FAERS Safety Report 7156303-3 (Version None)
Quarter: 2010Q4

REPORT INFORMATION
  Report Type: 
  Country: None (occurrence: None)
  Receive Date: 20101123
  Receipt Date: 20100901
  Transmission Date: 20110411
  Serious: Yes (Hospitalization)
  Sender: FDA-Public Use
  Company Number: 015360

PATIENT
  Sex: Male

DRUGS (2)
  1. CIMZIA [Suspect]
     Indication: CROHN'S DISEASE
     Dosage: 400 MG  1X/MONTH SUBCUTANEOUS, 400 MG 1X/28 DAYS SUBCUTANEOUS
     Route: 058
     Dates: start: 20090102
  2. CIMZIA [Suspect]

REACTIONS (1)
  - IRRITABLE BOWEL SYNDROME [None]
